FAERS Safety Report 6657790-7 (Version None)
Quarter: 2010Q1

REPORT INFORMATION
  Report Type: 
  Country: None (occurrence: None)
  Receive Date: 20100330
  Receipt Date: 20100323
  Transmission Date: 20100710
  Serious: Yes (Other)
  Sender: FDA-Public Use
  Company Number: JP-ROCHE-684310

PATIENT
  Sex: Male
  Weight: 49 kg

DRUGS (9)
  1. XELODA [Suspect]
     Indication: COLON CANCER
     Dosage: ACTION TAKEN: DISCONTINUED
     Route: 048
     Dates: start: 20091225, end: 20100129
  2. PYDOXAL [Concomitant]
     Route: 048
     Dates: start: 20091225, end: 20100304
  3. WHITE PETROLATUM [Concomitant]
     Dosage: FORM: OINTMENT AND CREAM
     Route: 061
     Dates: start: 20091225, end: 20100226
  4. OMEPRAL [Concomitant]
     Dosage: FORM: ENTERIC COATING DRUG.
     Route: 048
  5. AMLODIPINE [Concomitant]
     Route: 048
  6. GLUCOBAY [Concomitant]
     Route: 048
  7. RIKKUNSHI-TO [Concomitant]
     Dosage: FORM: PERORAL AGENT
     Route: 048
  8. ALINAMINE-F [Concomitant]
     Route: 048
  9. DAIO-KANZO-TO [Concomitant]
     Route: 048

REACTIONS (2)
  - RETINAL EXUDATES [None]
  - RETINAL OEDEMA [None]
